FAERS Safety Report 14736418 (Version 1)
Quarter: 2018Q2

REPORT INFORMATION
  Report Type: Spontaneous
  Country: US (occurrence: US)
  Receive Date: 20180404
  Receipt Date: 20180404
  Transmission Date: 20180711
  Serious: Yes (Disabling, Other)
  Sender: FDA-Public Use
  Company Number: None

PATIENT
  Age: 61 Year
  Sex: Male
  Weight: 53.55 kg

DRUGS (3)
  1. ADVIL [Concomitant]
     Active Substance: IBUPROFEN
  2. CLONAZEPAM 0.5MG [Suspect]
     Active Substance: CLONAZEPAM
     Indication: DYSTONIA
     Dosage: ?          QUANTITY:1 TABLET(S);?
     Route: 048
  3. TYLENOL [Concomitant]
     Active Substance: ACETAMINOPHEN

REACTIONS (4)
  - Product measured potency issue [None]
  - Insomnia [None]
  - Muscle spasms [None]
  - Product substitution issue [None]

NARRATIVE: CASE EVENT DATE: 20180403
